FAERS Safety Report 17620936 (Version 1)
Quarter: 2020Q2

REPORT INFORMATION
  Report Type: Other
  Country: CA (occurrence: CA)
  Receive Date: 20200403
  Receipt Date: 20200403
  Transmission Date: 20200713
  Serious: Yes (Hospitalization, Other)
  Sender: FDA-Public Use
  Company Number: CA-GLENMARK PHARMACEUTICALS-2020GMK047006

PATIENT

DRUGS (5)
  1. HYDROMORPHONE HYDROCHLORIDE. [Suspect]
     Active Substance: HYDROMORPHONE HYDROCHLORIDE
     Indication: PELVIC PAIN
     Dosage: 12.5 MILLIGRAM, UNK
     Route: 058
  2. METHADONE [Suspect]
     Active Substance: METHADONE HYDROCHLORIDE
     Indication: PELVIC PAIN
     Dosage: 15 MILLIGRAM, TID
     Route: 065
  3. GABAPENTIN. [Suspect]
     Active Substance: GABAPENTIN
     Indication: PELVIC PAIN
     Dosage: 4 MILLIGRAM, TID
     Route: 048
  4. SUFENTANIL CITRATE. [Suspect]
     Active Substance: SUFENTANIL CITRATE
     Indication: PELVIC PAIN
     Dosage: UNK
     Route: 060
  5. KETAMINE HYDROCHLORIDE. [Suspect]
     Active Substance: KETAMINE HYDROCHLORIDE
     Indication: PELVIC PAIN
     Dosage: 500 MILLIGRAM, OD
     Route: 058

REACTIONS (3)
  - Drug ineffective [Unknown]
  - Delirium [Unknown]
  - Product use in unapproved indication [Unknown]
